FAERS Safety Report 23840716 (Version 2)
Quarter: 2024Q4

REPORT INFORMATION
  Report Type: Spontaneous
  Country: FR (occurrence: FR)
  Receive Date: 20240510
  Receipt Date: 20241105
  Transmission Date: 20250115
  Serious: Yes (Life-Threatening)
  Sender: ACCORD
  Company Number: None

PATIENT
  Age: 53 Year
  Sex: Female

DRUGS (3)
  1. CARBOPLATIN [Suspect]
     Active Substance: CARBOPLATIN
     Indication: Occupational exposure to product
     Dates: start: 2024, end: 2024
  2. CISPLATIN [Suspect]
     Active Substance: CISPLATIN
     Indication: Occupational exposure to product
     Dates: start: 2024, end: 2024
  3. OXALIPLATIN [Suspect]
     Active Substance: OXALIPLATIN
     Indication: Occupational exposure to product
     Dates: start: 2024, end: 2024

REACTIONS (1)
  - Anaphylactic reaction [Recovered/Resolved]

NARRATIVE: CASE EVENT DATE: 20240101
